FAERS Safety Report 8410532 (Version 2)
Quarter: 2013Q2

REPORT INFORMATION
  Report Type: Spontaneous
  Country: US (occurrence: None)
  Receive Date: 20111227
  Receipt Date: 20121218
  Transmission Date: 20140414
  Serious: Yes (Other)
  Sender: FDA-Public Use
  Company Number: PHHY2010US40263

PATIENT
  Age: 73 Year
  Sex: Female

DRUGS (7)
  1. FEMARA [Suspect]
     Dosage: 2.5 MG, 1 X 2
     Dates: start: 2007
  2. ZESTRIL [Suspect]
  3. ASPIRIN (ACETYLSALICYLIC ACID) [Concomitant]
  4. MIRALAX [Concomitant]
  5. GAS-X (SIMETICONE) [Concomitant]
  6. MULTI-VITAMIN (CALCIUM PANTOTHENATE, FOLIC ACID, VITAMINS NOS) [Concomitant]
  7. NEXIUM [Concomitant]

REACTIONS (7)
  - OSTEOPOROSIS [None]
  - SOMNOLENCE [None]
  - HYPERTENSION [None]
  - ASTHENIA [None]
  - FATIGUE [None]
  - GAIT DISTURBANCE [None]
  - DIZZINESS [None]
